FAERS Safety Report 15077623 (Version 1)
Quarter: 2018Q2

REPORT INFORMATION
  Report Type: Report from Study
  Country: BR (occurrence: BR)
  Receive Date: 20180627
  Receipt Date: 20180627
  Transmission Date: 20180711
  Serious: Yes (Other)
  Sender: FDA-Public Use
  Company Number: BR-UCBSA-2018020695

PATIENT
  Age: 34 Year
  Sex: Male
  Weight: 106 kg

DRUGS (11)
  1. LEVETIRACETAM. [Suspect]
     Active Substance: LEVETIRACETAM
     Dosage: 250 MG, 3X/DAY (TID)
     Route: 048
     Dates: start: 2018, end: 2018
  2. GARDENAL [Concomitant]
     Active Substance: PHENOBARBITAL
     Indication: EPILEPSY
     Dosage: 100 MG, 3X/DAY (TID)
     Route: 048
     Dates: start: 19831107
  3. URBANIL [Concomitant]
     Active Substance: CLOBAZAM
     Indication: EPILEPSY
     Dosage: 10 MG, 3X/DAY (TID)
     Route: 048
     Dates: start: 20081107
  4. CARBAMAZEPINE. [Concomitant]
     Active Substance: CARBAMAZEPINE
     Indication: EPILEPSY
     Dosage: 400 MG, 3X/DAY (TID)
     Route: 048
  5. LEVETIRACETAM. [Suspect]
     Active Substance: LEVETIRACETAM
     Dosage: 2000 MG PER DAY
     Route: 048
     Dates: start: 2018, end: 2018
  6. VIMPAT [Suspect]
     Active Substance: LACOSAMIDE
     Indication: EPILEPSY
     Dosage: 50 MG, 3X/DAY (TID)
     Route: 048
     Dates: start: 20180525
  7. URBANIL [Concomitant]
     Active Substance: CLOBAZAM
     Dosage: 10 MG, 4X/DAY (QID)
     Route: 048
     Dates: start: 20081107
  8. TEGRETOL [Concomitant]
     Active Substance: CARBAMAZEPINE
     Indication: EPILEPSY
     Dosage: 750 MG, 3X/DAY (TID)
     Route: 048
     Dates: start: 19831107
  9. GARDENAL [Concomitant]
     Active Substance: PHENOBARBITAL
     Dosage: 100 MG, 2X/DAY (BID)
  10. VIMPAT [Suspect]
     Active Substance: LACOSAMIDE
     Dosage: 300 MG PER DAY
     Route: 048
     Dates: start: 20180615
  11. LEVETIRACETAM. [Suspect]
     Active Substance: LEVETIRACETAM
     Indication: EPILEPSY
     Dosage: 250 MG, 4X/DAY (QID)
     Route: 048
     Dates: start: 20180307, end: 2018

REACTIONS (3)
  - Off label use [Unknown]
  - Seizure [Unknown]
  - Drug ineffective [Unknown]

NARRATIVE: CASE EVENT DATE: 2018
